FAERS Safety Report 6156205-5 (Version None)
Quarter: 2009Q2

REPORT INFORMATION
  Report Type: 
  Country: None (occurrence: None)
  Receive Date: 20090415
  Receipt Date: 20090403
  Transmission Date: 20091009
  Serious: Yes (Other)
  Sender: FDA-Public Use
  Company Number: GB-PFIZER INC-2009192930

PATIENT

DRUGS (1)
  1. CHAMPIX [Suspect]
     Indication: SMOKING CESSATION THERAPY
     Dosage: 0.5 UG, 2X/DAY
     Route: 048
     Dates: start: 20090310, end: 20090315

REACTIONS (2)
  - CARDIAC DISORDER [None]
  - CHEST DISCOMFORT [None]
